FAERS Safety Report 9023917 (Version 1)
Quarter: 2013Q1

REPORT INFORMATION
  Report Type: Spontaneous
  Country: US (occurrence: US)
  Receive Date: 20130121
  Receipt Date: 20130121
  Transmission Date: 20140127
  Serious: No
  Sender: FDA-Public Use
  Company Number: US-PFIZER INC-2013018598

PATIENT
  Age: 82 Year
  Sex: Female
  Weight: 58.5 kg

DRUGS (6)
  1. TOVIAZ [Suspect]
     Dosage: 4 MG, 1X/DAY
     Route: 048
     Dates: start: 201211
  2. TOVIAZ [Suspect]
     Dosage: 4 MG, 2X/DAY
     Route: 048
  3. TOVIAZ [Suspect]
     Dosage: 8 MG, 1X/DAY
     Route: 048
  4. LOVASTATIN [Concomitant]
     Indication: BLOOD CHOLESTEROL INCREASED
     Dosage: 40 MG, 1X/DAY
  5. LOSARTAN [Concomitant]
     Indication: HYPERTENSION
     Dosage: 25 MG, 1X/DAY
  6. COUMADIN [Concomitant]
     Indication: ILL-DEFINED DISORDER
     Dosage: 5 MG, UNK

REACTIONS (5)
  - Drug ineffective [Unknown]
  - Feeling abnormal [Unknown]
  - Stress [Unknown]
  - Emotional disorder [Unknown]
  - Crying [Unknown]
